FAERS Safety Report 4630975-7 (Version None)
Quarter: 2005Q2

REPORT INFORMATION
  Report Type: 
  Country: None (occurrence: None)
  Receive Date: 20050406
  Receipt Date: 20050406
  Transmission Date: 20051028
  Serious: Yes (Other)
  Sender: FDA-Public Use
  Company Number: None

PATIENT
  Age: 42 Year
  Sex: Female
  Weight: 43.0917 kg

DRUGS (1)
  1. CYMBALTA [Suspect]
     Indication: RADICULAR PAIN
     Dosage: 30 MG 7 DAYS/50 MG ORAL
     Route: 048
     Dates: start: 20040208, end: 20040225

REACTIONS (8)
  - ASTHENIA [None]
  - CONFUSIONAL STATE [None]
  - HEADACHE [None]
  - HEART RATE INCREASED [None]
  - NAUSEA [None]
  - NIGHT SWEATS [None]
  - PANIC REACTION [None]
  - SLEEP DISORDER [None]
